FAERS Safety Report 6193850-5 (Version None)
Quarter: 2009Q2

REPORT INFORMATION
  Report Type: 
  Country: None (occurrence: None)
  Receive Date: 20090514
  Receipt Date: 20090501
  Transmission Date: 20091009
  Serious: Yes (Other)
  Sender: FDA-Public Use
  Company Number: 20090144

PATIENT
  Age: 3 Month
  Sex: Male
  Weight: 6.4 kg

DRUGS (1)
  1. FUROSEMIDE [Suspect]
     Dosage: 6 MG INTRAVENOUS
     Route: 042
     Dates: start: 20090420, end: 20090420

REACTIONS (3)
  - DYSPNOEA [None]
  - STRIDOR [None]
  - TACHYCARDIA [None]
